FAERS Safety Report 7768657-5 (Version None)
Quarter: 2011Q3

REPORT INFORMATION
  Report Type: 
  Country: None (occurrence: None)
  Receive Date: 20110922
  Receipt Date: 20110712
  Transmission Date: 20111222
  Serious: No
  Sender: FDA-Public Use
  Company Number: US-ASTRAZENECA-2011SE41466

PATIENT
  Sex: Female

DRUGS (4)
  1. SEROQUEL XR [Suspect]
     Route: 048
     Dates: start: 20110301
  2. SEROQUEL XR [Suspect]
     Indication: DEPRESSION
     Dosage: LESSAR DOSAGE
     Route: 048
     Dates: start: 20090101
  3. SEROQUEL XR [Suspect]
     Indication: POST-TRAUMATIC STRESS DISORDER
     Dosage: LESSAR DOSAGE
     Route: 048
     Dates: start: 20090101
  4. SEROQUEL XR [Suspect]
     Route: 048
     Dates: start: 20110301

REACTIONS (2)
  - DRUG DOSE OMISSION [None]
  - CONFUSIONAL STATE [None]
